FAERS Safety Report 6497816-7 (Version None)
Quarter: 2009Q4

REPORT INFORMATION
  Report Type: 
  Country: None (occurrence: None)
  Receive Date: 20091215
  Receipt Date: 20091130
  Transmission Date: 20100525
  Serious: No
  Sender: FDA-Public Use
  Company Number: FR-ROCHE-674273

PATIENT
  Sex: Male
  Weight: 17 kg

DRUGS (2)
  1. TAMIFLU [Suspect]
     Indication: DRUG USE FOR UNKNOWN INDICATION
     Dosage: DOSE: 75 MG IN THE MORNING, 45 MG IN THE EVENING
     Route: 048
     Dates: start: 20091130, end: 20091130
  2. TAMIFLU [Suspect]
     Route: 048
     Dates: start: 20091201

REACTIONS (2)
  - INCORRECT DOSE ADMINISTERED [None]
  - NO ADVERSE EVENT [None]
